FAERS Safety Report 16877591 (Version 1)
Quarter: 2019Q4

REPORT INFORMATION
  Report Type: Report from Study
  Country: IT (occurrence: IT)
  Receive Date: 20191002
  Receipt Date: 20191002
  Transmission Date: 20200122
  Serious: Yes (Death)
  Sender: FDA-Public Use
  Company Number: IT-PFIZER INC-2019417948

PATIENT

DRUGS (5)
  1. OXALIPLATIN. [Suspect]
     Active Substance: OXALIPLATIN
     Indication: GASTRIC CANCER
     Dosage: 130 MG/M2, CYCLIC, (Q21 DAYS, THREE CYCLES)
  2. CAPECITABINE. [Suspect]
     Active Substance: CAPECITABINE
     Indication: GASTRIC CANCER
     Dosage: 625 MG/M2, 2X/DAY, (THREE CYCLES)
     Route: 048
  3. OXALIPLATIN. [Suspect]
     Active Substance: OXALIPLATIN
     Dosage: 30 MG/M2, WEEKLY, (5 WKS)
  4. CAPECITABINE. [Suspect]
     Active Substance: CAPECITABINE
     Dosage: 625 MG/M2, 2X/DAY, (CONCURRENT)
     Route: 048
  5. EPIRUBICIN HCL [Suspect]
     Active Substance: EPIRUBICIN HYDROCHLORIDE
     Indication: GASTRIC CANCER
     Dosage: 50 MG/M2, CYCLIC, (THREE CYCLES, Q21 DAYS)

REACTIONS (1)
  - Death [Fatal]
